FAERS Safety Report 9945343 (Version 1)
Quarter: 2014Q1

REPORT INFORMATION
  Report Type: Report from Study
  Country: US (occurrence: US)
  Receive Date: 20140303
  Receipt Date: 20140303
  Transmission Date: 20141002
  Serious: No
  Sender: FDA-Public Use
  Company Number: US-ABBVIE-13P-163-1055540-00

PATIENT
  Age: 37 Year
  Sex: Female

DRUGS (6)
  1. HUMIRA [Suspect]
     Indication: AUTOIMMUNE DISORDER
     Dates: start: 20130211
  2. DEXAMETHASONE [Concomitant]
     Indication: AUTOIMMUNE DISORDER
     Dosage: EVERY FEW WEEKS
  3. SYNTHROID [Concomitant]
     Indication: THYROID DISORDER
  4. FOLIC ACID [Concomitant]
     Indication: PRODUCT USED FOR UNKNOWN INDICATION
     Dosage: DAILY
  5. LEXAPRO [Concomitant]
     Indication: SERUM SEROTONIN DECREASED
  6. IVIG INFUSION [Concomitant]
     Indication: PRODUCT USED FOR UNKNOWN INDICATION
     Dosage: GIVEN IV SPORADICALLY, 6 IN THE LAST YEAR

REACTIONS (3)
  - Incorrect dose administered [Unknown]
  - Injection site pain [Recovered/Resolved]
  - Off label use [Unknown]
